FAERS Safety Report 5730890-1 (Version None)
Quarter: 2008Q2

REPORT INFORMATION
  Report Type: 
  Country: None (occurrence: None)
  Receive Date: 20080507
  Receipt Date: 20080502
  Transmission Date: 20081010
  Serious: Yes (Other)
  Sender: FDA-Public Use
  Company Number: US-PFIZER INC-2008038808

PATIENT
  Sex: Female

DRUGS (3)
  1. DEPO-MEDROL [Suspect]
     Indication: TENDONITIS
  2. LIDOCAINE [Concomitant]
  3. MARCAINE [Concomitant]

REACTIONS (1)
  - MONOPLEGIA [None]
